FAERS Safety Report 9055408 (Version 2)
Quarter: 2013Q2

REPORT INFORMATION
  Report Type: Spontaneous
  Country: US (occurrence: US)
  Receive Date: 20130206
  Receipt Date: 20130515
  Transmission Date: 20140414
  Serious: Yes (Hospitalization, Other)
  Sender: FDA-Public Use
  Company Number: US-BAYER-2013-015032

PATIENT
  Age: 38 Year
  Sex: Female

DRUGS (9)
  1. YAZ [Suspect]
     Indication: DYSFUNCTIONAL UTERINE BLEEDING
  2. YASMIN [Suspect]
  3. OCELLA [Suspect]
  4. AMOXICILLIN [Concomitant]
     Dosage: 500 MG, TID
     Route: 048
     Dates: start: 20100905
  5. ACETAMINOPHEN W/CODEINE [Concomitant]
     Dosage: UNK
     Route: 048
     Dates: start: 20100908
  6. NAPROXEN [Concomitant]
     Dosage: 500 MG, BID
     Route: 048
     Dates: start: 20100916
  7. PROVERA [Concomitant]
     Indication: DYSFUNCTIONAL UTERINE BLEEDING
  8. LUPRON [Concomitant]
  9. NORETHINDRONE [Concomitant]

REACTIONS (8)
  - Deep vein thrombosis [None]
  - Pulmonary embolism [Recovered/Resolved]
  - Pain [None]
  - Injury [None]
  - General physical health deterioration [None]
  - Anxiety [None]
  - Emotional distress [None]
  - Pain [None]
